FAERS Safety Report 6803988-4 (Version None)
Quarter: 2010Q2

REPORT INFORMATION
  Report Type: 
  Country: None (occurrence: None)
  Receive Date: 20100628
  Receipt Date: 20060418
  Transmission Date: 20101027
  Serious: No
  Sender: FDA-Public Use
  Company Number: US-PFIZER INC-2006055610

PATIENT
  Sex: Female

DRUGS (13)
  1. SUTENT [Suspect]
     Indication: RENAL CANCER
     Route: 048
     Dates: start: 20060101
  2. AMARYL [Concomitant]
     Route: 065
  3. ZETIA [Concomitant]
     Route: 065
  4. PREVACID [Concomitant]
     Route: 065
  5. STOOL SOFTENER [Concomitant]
     Route: 065
  6. BECONASE [Concomitant]
     Route: 065
  7. DARVOCET-N 100 [Concomitant]
     Route: 065
  8. XANAX [Concomitant]
     Route: 065
  9. LIDODERM [Concomitant]
     Route: 065
  10. PHENERGAN VC [Concomitant]
     Route: 065
  11. AVAPRO [Concomitant]
     Route: 065
  12. NORVASC [Concomitant]
     Route: 065
  13. ALL OTHER THERAPEUTIC PRODUCTS [Concomitant]
     Route: 065

REACTIONS (5)
  - BLOOD PRESSURE INCREASED [None]
  - EYE OEDEMA [None]
  - OEDEMA PERIPHERAL [None]
  - SWELLING FACE [None]
  - THYROID DISORDER [None]
